APPROVED DRUG PRODUCT: METFORMIN HYDROCHLORIDE
Active Ingredient: METFORMIN HYDROCHLORIDE
Strength: 500MG
Dosage Form/Route: TABLET;ORAL
Application: A209882 | Product #001 | TE Code: AB
Applicant: LAURUS LABS LTD
Approved: Aug 27, 2018 | RLD: No | RS: No | Type: RX